FAERS Safety Report 7852705-8 (Version None)
Quarter: 2011Q4

REPORT INFORMATION
  Report Type: 
  Country: None (occurrence: None)
  Receive Date: 20111026
  Receipt Date: 20111017
  Transmission Date: 20120403
  Serious: Yes (Hospitalization)
  Sender: FDA-Public Use
  Company Number: US-ASTRAZENECA-2011SE62692

PATIENT
  Age: 48 Year
  Sex: Female

DRUGS (2)
  1. PLENDIL [Suspect]
     Route: 048
  2. TOPROL-XL [Concomitant]
     Route: 048

REACTIONS (3)
  - CEREBRAL HAEMORRHAGE [None]
  - MENTAL IMPAIRMENT [None]
  - CEREBROVASCULAR ACCIDENT [None]
